FAERS Safety Report 13426477 (Version 2)
Quarter: 2017Q2

REPORT INFORMATION
  Report Type: Spontaneous
  Country: US (occurrence: US)
  Receive Date: 20170411
  Receipt Date: 20170619
  Transmission Date: 20170830
  Serious: Yes (Hospitalization, Other)
  Sender: FDA-Public Use
  Company Number: US-TEVA-759327USA

PATIENT
  Age: 84 Year
  Sex: Female

DRUGS (1)
  1. QVAR [Suspect]
     Active Substance: BECLOMETHASONE DIPROPIONATE
     Route: 065

REACTIONS (3)
  - Hip fracture [Unknown]
  - Fall [Unknown]
  - Anaemia [Unknown]

NARRATIVE: CASE EVENT DATE: 201612
